FAERS Safety Report 11143386 (Version 2)
Quarter: 2015Q3

REPORT INFORMATION
  Report Type: Report from Study
  Country: US (occurrence: US)
  Receive Date: 20150528
  Receipt Date: 20150701
  Transmission Date: 20151125
  Serious: Yes (Other)
  Sender: FDA-Public Use
  Company Number: US-ROCHE-1583843

PATIENT
  Age: 70 Year
  Sex: Female
  Weight: 88.53 kg

DRUGS (3)
  1. LUCENTIS [Suspect]
     Active Substance: RANIBIZUMAB
     Indication: CHOROIDAL NEOVASCULARISATION
     Route: 050
     Dates: start: 20150415
  2. LUCENTIS [Suspect]
     Active Substance: RANIBIZUMAB
     Indication: NEOVASCULAR AGE-RELATED MACULAR DEGENERATION
     Dosage: LEFT EYE INJECTION?ONLY HAD 1 INJECTION
     Route: 050
     Dates: start: 20150413
  3. AVASTIN [Suspect]
     Active Substance: BEVACIZUMAB
     Indication: CHOROIDAL NEOVASCULARISATION
     Route: 050
     Dates: start: 20150107

REACTIONS (38)
  - Renal disorder [Unknown]
  - Renal injury [Unknown]
  - Muscle injury [Unknown]
  - Balance disorder [Unknown]
  - Dysuria [Unknown]
  - Urine odour abnormal [Unknown]
  - Arthralgia [Unknown]
  - Intraocular pressure increased [Unknown]
  - Insomnia [Unknown]
  - Tinnitus [Unknown]
  - Urinary sediment present [Unknown]
  - Muscular weakness [Unknown]
  - Angina pectoris [Unknown]
  - Cerebral disorder [Unknown]
  - Amnesia [Unknown]
  - Deafness [Unknown]
  - Hepatic enzyme abnormal [Unknown]
  - Cutis laxa [Unknown]
  - Overdose [Unknown]
  - Muscle atrophy [Unknown]
  - Hypoaesthesia [Unknown]
  - Chromaturia [Unknown]
  - Specific gravity urine increased [Unknown]
  - Bladder disorder [Unknown]
  - Gait disturbance [Unknown]
  - Pain [Unknown]
  - Increased appetite [Unknown]
  - Weight increased [Unknown]
  - Fatigue [Unknown]
  - Liver injury [Unknown]
  - Renal pain [Unknown]
  - Gastrointestinal pain [Unknown]
  - Hormone level abnormal [Unknown]
  - Blood cholesterol increased [Unknown]
  - Eye inflammation [Unknown]
  - VIIIth nerve lesion [Unknown]
  - Urethral disorder [Unknown]
  - Eye pain [Unknown]

NARRATIVE: CASE EVENT DATE: 20150430
